FAERS Safety Report 18183669 (Version 1)
Quarter: 2020Q3

REPORT INFORMATION
  Report Type: Spontaneous
  Country: US (occurrence: US)
  Receive Date: 20200822
  Receipt Date: 20200822
  Transmission Date: 20201103
  Serious: No
  Sender: FDA-Public Use
  Company Number: US-ANIPHARMA-2019-US-021093

PATIENT
  Sex: Female

DRUGS (2)
  1. ARIMIDEX [Suspect]
     Active Substance: ANASTROZOLE
     Indication: INVASIVE DUCTAL BREAST CARCINOMA
     Dosage: 1 MG
     Route: 048
     Dates: start: 200608
  2. RADIATION [Concomitant]
     Active Substance: RADIATION THERAPY
     Dosage: UNK
     Route: 065
     Dates: start: 20060821, end: 20060928

REACTIONS (2)
  - Drug hypersensitivity [Unknown]
  - Rash [Unknown]
